FAERS Safety Report 8830558 (Version 1)
Quarter: 2012Q4

REPORT INFORMATION
  Report Type: 
  Country: JP (occurrence: JP)
  Receive Date: 20121009
  Receipt Date: 20121009
  Transmission Date: 20130627
  Serious: Yes (Other)
  Sender: FDA-Public Use
  Company Number: JP-ELI_LILLY_AND_COMPANY-JP201209008067

PATIENT
  Age: 48 Year
  Sex: Male

DRUGS (2)
  1. ZYPREXA [Suspect]
     Indication: SCHIZOPHRENIA
     Dosage: UNK
     Route: 048
     Dates: start: 2008, end: 201203
  2. ZYPREXA [Suspect]
     Dosage: UNK
     Route: 048
     Dates: start: 20120402

REACTIONS (6)
  - Neuroleptic malignant syndrome [Recovering/Resolving]
  - Blood creatine phosphokinase increased [Unknown]
  - Dyskinesia [Recovering/Resolving]
  - Hyperhidrosis [Recovering/Resolving]
  - Pyrexia [Recovering/Resolving]
  - Muscle rigidity [Recovering/Resolving]
